FAERS Safety Report 21964770 (Version 9)
Quarter: 2024Q1

REPORT INFORMATION
  Report Type: Report from Study
  Country: DE (occurrence: DE)
  Receive Date: 20230207
  Receipt Date: 20240319
  Transmission Date: 20240410
  Serious: Yes (Death, Life-Threatening, Hospitalization, Other)
  Sender: FDA-Public Use
  Company Number: DE-JNJFOC-20230164704

PATIENT
  Age: 72 Year
  Sex: Male
  Weight: 65 kg

DRUGS (14)
  1. BORTEZOMIB [Suspect]
     Active Substance: BORTEZOMIB
     Indication: Plasma cell myeloma
     Dosage: UNK
     Route: 058
     Dates: start: 20221117
  2. BORTEZOMIB [Suspect]
     Active Substance: BORTEZOMIB
     Dosage: UNK
     Route: 058
     Dates: start: 20221228
  3. BORTEZOMIB [Suspect]
     Active Substance: BORTEZOMIB
     Dosage: UNK
     Route: 058
     Dates: start: 20230204
  4. DEXAMETHASONE [Suspect]
     Active Substance: DEXAMETHASONE
     Indication: Product used for unknown indication
     Dosage: UNK
     Route: 065
     Dates: start: 20230320, end: 20230320
  5. DEXAMETHASONE [Suspect]
     Active Substance: DEXAMETHASONE
     Indication: Sepsis
  6. DARZALEX [Suspect]
     Active Substance: DARATUMUMAB
     Indication: Plasma cell myeloma
     Dosage: UNK
     Route: 042
     Dates: start: 20221117
  7. DARZALEX [Suspect]
     Active Substance: DARATUMUMAB
     Dosage: UNK
     Route: 042
     Dates: start: 20221212
  8. DARZALEX [Suspect]
     Active Substance: DARATUMUMAB
     Dosage: UNK
     Route: 042
     Dates: start: 20230204
  9. CARFILZOMIB [Suspect]
     Active Substance: CARFILZOMIB
     Indication: Plasma cell myeloma
     Dosage: UNK
     Route: 065
  10. ETOPOSIDE [Suspect]
     Active Substance: ETOPOSIDE
     Indication: Plasma cell myeloma
     Dosage: UNK
     Route: 065
  11. DOXORUBICIN [Suspect]
     Active Substance: DOXORUBICIN
     Indication: Plasma cell myeloma
     Dosage: UNK
     Route: 065
  12. CYCLOPHOSPHAMIDE [Suspect]
     Active Substance: CYCLOPHOSPHAMIDE
     Indication: Plasma cell myeloma
     Dosage: UNK
     Route: 065
  13. THALIDOMIDE [Suspect]
     Active Substance: THALIDOMIDE
     Indication: Product used for unknown indication
     Dosage: UNK
     Route: 065
  14. POMALIDOMIDE [Suspect]
     Active Substance: POMALIDOMIDE
     Indication: Product used for unknown indication
     Dosage: UNK
     Route: 065

REACTIONS (11)
  - Sepsis [Fatal]
  - Device related sepsis [Unknown]
  - Tachypnoea [Unknown]
  - Pulmonary oedema [Recovered/Resolved]
  - Renal failure [Not Recovered/Not Resolved]
  - Hypertension [Not Recovered/Not Resolved]
  - Tachycardia [Unknown]
  - Depressed level of consciousness [Unknown]
  - Multiple organ dysfunction syndrome [Unknown]
  - General physical health deterioration [Unknown]
  - Pyrexia [Recovered/Resolved]

NARRATIVE: CASE EVENT DATE: 20221218
